FAERS Safety Report 17064031 (Version 1)
Quarter: 2019Q4

REPORT INFORMATION
  Report Type: Spontaneous
  Country: FR (occurrence: FR)
  Receive Date: 20191122
  Receipt Date: 20191122
  Transmission Date: 20200122
  Serious: Yes (Death)
  Sender: FDA-Public Use
  Company Number: FR-EISAI MEDICAL RESEARCH-EC-2019-065762

PATIENT
  Age: 33 Year
  Sex: Male
  Weight: 75 kg

DRUGS (6)
  1. FYCOMPA [Suspect]
     Active Substance: PERAMPANEL
     Indication: LENNOX-GASTAUT SYNDROME
     Route: 048
     Dates: end: 20191103
  2. DEPAKINE [Suspect]
     Active Substance: VALPROATE SODIUM
     Indication: LENNOX-GASTAUT SYNDROME
     Route: 048
     Dates: end: 20191103
  3. EPIDIOLEX [Suspect]
     Active Substance: CANNABIDIOL
     Indication: LENNOX-GASTAUT SYNDROME
     Route: 048
     Dates: start: 20191001, end: 20191103
  4. VIMPAT [Suspect]
     Active Substance: LACOSAMIDE
     Indication: LENNOX-GASTAUT SYNDROME
     Route: 048
     Dates: end: 20191103
  5. GARDENAL [Suspect]
     Active Substance: PHENOBARBITAL
     Indication: LENNOX-GASTAUT SYNDROME
     Route: 048
     Dates: end: 20191103
  6. NIVAQUINE [Concomitant]
     Active Substance: CHLOROQUINE
     Indication: LUPUS-LIKE SYNDROME
     Dosage: DOSE AND FREQUENCY UNKNOWN
     Route: 048
     Dates: end: 20191103

REACTIONS (1)
  - Sudden death [Fatal]

NARRATIVE: CASE EVENT DATE: 20191104
